FAERS Safety Report 16238558 (Version 1)
Quarter: 2019Q2

REPORT INFORMATION
  Report Type: Spontaneous
  Country: US (occurrence: US)
  Receive Date: 20190424
  Receipt Date: 20190424
  Transmission Date: 20190711
  Serious: Yes (Life-Threatening, Hospitalization, Other)
  Sender: FDA-Public Use
  Company Number: None

PATIENT
  Age: 38 Year
  Sex: Female
  Weight: 74.25 kg

DRUGS (4)
  1. KURVELO [Concomitant]
     Active Substance: ETHINYL ESTRADIOL\LEVONORGESTREL
  2. PAROXETINE(PAXIL) [Concomitant]
  3. VITAMINS [Concomitant]
     Active Substance: VITAMINS
  4. BRIDION [Suspect]
     Active Substance: SUGAMMADEX
     Indication: ANAESTHESIA REVERSAL
     Dates: start: 20171228, end: 20171228

REACTIONS (3)
  - Laryngospasm [None]
  - Bronchospasm [None]
  - Anaphylactic reaction [None]

NARRATIVE: CASE EVENT DATE: 20171228
